FAERS Safety Report 9069055 (Version 1)
Quarter: 2013Q1

REPORT INFORMATION
  Report Type: Spontaneous
  Country: US (occurrence: None)
  Receive Date: 20130213
  Receipt Date: 20130213
  Transmission Date: 20140127
  Serious: Yes (Hospitalization)
  Sender: FDA-Public Use
  Company Number: None

PATIENT
  Sex: Male
  Weight: 95 kg

DRUGS (7)
  1. CYCLOPHOSPHAMIDE [Suspect]
  2. DOXORUBICIN HYDROCHLORIDE [Suspect]
  3. ETOPOSIDE (VP 16) [Suspect]
  4. METHOTREXATE [Suspect]
  5. PREDNISONE [Suspect]
  6. RITUXIMAB (MOAB C2B8 ANTI CD20, CHIMERIC) [Suspect]
  7. VINCRISTINE SULFATE [Suspect]

REACTIONS (4)
  - Diarrhoea [None]
  - Pancytopenia [None]
  - Dehydration [None]
  - Pyrexia [None]
